FAERS Safety Report 11174859 (Version 1)
Quarter: 2015Q2

REPORT INFORMATION
  Report Type: Spontaneous
  Country: GB (occurrence: GB)
  Receive Date: 20150609
  Receipt Date: 20150609
  Transmission Date: 20150821
  Serious: Yes (Death, Life-Threatening, Hospitalization)
  Sender: FDA-Public Use
  Company Number: GB-HOSPIRA-2886594

PATIENT
  Age: 70 Year
  Sex: Male

DRUGS (1)
  1. METHOTREXATE [Suspect]
     Active Substance: METHOTREXATE
     Indication: PSORIASIS

REACTIONS (2)
  - Pulmonary fibrosis [Fatal]
  - Respiratory failure [Fatal]
